FAERS Safety Report 9097078 (Version 1)
Quarter: 2013Q1

REPORT INFORMATION
  Report Type: Spontaneous
  Country: CH (occurrence: None)
  Receive Date: 20130123
  Receipt Date: 20130123
  Transmission Date: 20140127
  Serious: Yes (Life-Threatening, Hospitalization)
  Sender: FDA-Public Use
  Company Number: 2012-23466

PATIENT
  Age: 77 Year
  Sex: Female

DRUGS (3)
  1. BISOPROLOL [Suspect]
  2. VERAPAMIL HYDROCHLORIDE [Suspect]
     Indication: ATRIAL FIBRILLATION
  3. PHENPROCOUMON (PHENPROCOUMON) [Concomitant]

REACTIONS (6)
  - Cardiogenic shock [None]
  - Renal failure [None]
  - Metabolic acidosis [None]
  - International normalised ratio increased [None]
  - Ventricular hypokinesia [None]
  - Hepatic function abnormal [None]
